FAERS Safety Report 4263278-3 (Version None)
Quarter: 2004Q1

REPORT INFORMATION
  Report Type: 
  Country: None (occurrence: None)
  Receive Date: 20040104
  Receipt Date: 20040104
  Transmission Date: 20041129
  Serious: Yes (Other)
  Sender: FDA-Public Use
  Company Number: None

PATIENT
  Sex: Female
  Weight: 58.0604 kg

DRUGS (1)
  1. SULPHASALAZINE [Suspect]
     Indication: ANKYLOSING SPONDYLITIS
     Dosage: 2 PILLS TWICE A DA
     Dates: start: 20021015, end: 20030101

REACTIONS (2)
  - ANXIETY [None]
  - INSOMNIA [None]
